FAERS Safety Report 7550441-9 (Version None)
Quarter: 2011Q2

REPORT INFORMATION
  Report Type: 
  Country: None (occurrence: None)
  Receive Date: 20110615
  Receipt Date: 20110314
  Transmission Date: 20111010
  Serious: No
  Sender: FDA-Public Use
  Company Number: US-BAUSCH-2011BL000301

PATIENT
  Age: 56 Year
  Sex: Male
  Weight: 108 kg

DRUGS (16)
  1. BESIVANCE [Suspect]
     Indication: PROPHYLAXIS
     Route: 047
     Dates: start: 20110114, end: 20110114
  2. KADIN [Concomitant]
     Indication: BACK DISORDER
     Route: 048
  3. MOTRIN [Concomitant]
     Indication: BACK DISORDER
  4. FISH OIL [Concomitant]
     Indication: PROPHYLAXIS
  5. ZOCOR [Concomitant]
     Indication: BLOOD CHOLESTEROL INCREASED
     Route: 048
  6. ASPIRIN [Concomitant]
     Indication: PROPHYLAXIS
     Route: 048
  7. LYRICA [Concomitant]
     Indication: BACK DISORDER
     Route: 048
  8. BESIVANCE [Suspect]
     Indication: OFF LABEL USE
     Route: 047
     Dates: start: 20110114, end: 20110114
  9. NAPROXEN (ALEVE) [Concomitant]
     Indication: BACK DISORDER
     Route: 048
  10. ZYMBALTA [Concomitant]
  11. SYSTANE [Concomitant]
     Route: 047
  12. FLEXERIL [Concomitant]
     Indication: BACK DISORDER
     Route: 048
  13. ACETAMINOPHEN [Concomitant]
     Indication: BACK DISORDER
  14. MORPHINE SULFATE [Concomitant]
     Indication: BACK DISORDER
  15. ZESTRIL /USA/ [Concomitant]
     Indication: HYPERTENSION
     Route: 048
  16. LISINOPRIL [Concomitant]
     Indication: HYPERTENSION

REACTIONS (2)
  - ULCERATIVE KERATITIS [None]
  - IRITIS [None]
